FAERS Safety Report 4614699-8 (Version None)
Quarter: 2005Q1

REPORT INFORMATION
  Report Type: 
  Country: None (occurrence: None)
  Receive Date: 20050322
  Receipt Date: 20050310
  Transmission Date: 20050727
  Serious: Yes (Other)
  Sender: FDA-Public Use
  Company Number: US-JNJFOC-20050302889

PATIENT
  Sex: Female

DRUGS (13)
  1. INFLIXIMAB [Suspect]
     Indication: RHEUMATOID ARTHRITIS
     Route: 042
  2. CALCIUM/VITAMIN D [Concomitant]
  3. CALCIUM/VITAMIN D [Concomitant]
  4. CALCIUM/VITAMIN D [Concomitant]
  5. FOSAMAX [Concomitant]
  6. COENZYME Q10 [Concomitant]
  7. VITAMIN C [Concomitant]
  8. VITAMIN E [Concomitant]
  9. CALCIUM/MAGNESIUM/ZINC [Concomitant]
  10. CALCIUM/MAGNESIUM/ZINC [Concomitant]
  11. CALCIUM/MAGNESIUM/ZINC [Concomitant]
  12. FLAX SEED OIL [Concomitant]
  13. PRIMROSE OIL [Concomitant]

REACTIONS (1)
  - BASAL CELL CARCINOMA [None]
